FAERS Safety Report 10151153 (Version 1)
Quarter: 2014Q2

REPORT INFORMATION
  Report Type: Spontaneous
  Country: US (occurrence: US)
  Receive Date: 20140502
  Receipt Date: 20140502
  Transmission Date: 20141212
  Serious: No
  Sender: FDA-Public Use
  Company Number: US-BAYER-2014-064788

PATIENT
  Age: 50 Year
  Sex: Female

DRUGS (1)
  1. GADAVIST [Suspect]
     Dosage: 6 CC, ONCE
     Dates: start: 20140430, end: 20140430

REACTIONS (4)
  - Skin disorder [None]
  - Pruritus [None]
  - Lacrimation increased [None]
  - Dysphagia [None]
